FAERS Safety Report 18581961 (Version 1)
Quarter: 2020Q4

REPORT INFORMATION
  Report Type: Spontaneous
  Country: US (occurrence: US)
  Receive Date: 20201202
  Receipt Date: 20201202
  Transmission Date: 20210114
  Serious: Yes (Life-Threatening)
  Sender: FDA-Public Use
  Company Number: None

PATIENT
  Age: 56 Year
  Sex: Female
  Weight: 72 kg

DRUGS (1)
  1. DUPILUMAB (DUPILUMAB 150MG/ML INJ SYR, SYR , 2ML) [Suspect]
     Active Substance: DUPILUMAB
     Route: 058
     Dates: start: 20200622, end: 20201104

REACTIONS (8)
  - Cough [None]
  - Myalgia [None]
  - Eosinophilia [None]
  - Arthralgia [None]
  - Syncope [None]
  - Headache [None]
  - Wheezing [None]
  - Hepatic enzyme increased [None]

NARRATIVE: CASE EVENT DATE: 20201005
